FAERS Safety Report 5598512-0 (Version None)
Quarter: 2008Q1

REPORT INFORMATION
  Report Type: 
  Country: None (occurrence: None)
  Receive Date: 20080122
  Receipt Date: 20080116
  Transmission Date: 20080703
  Serious: Yes (Hospitalization)
  Sender: FDA-Public Use
  Company Number: PHEH2008US00934

PATIENT
  Sex: Female

DRUGS (4)
  1. TASIGNA [Suspect]
     Indication: CHRONIC MYELOID LEUKAEMIA
     Dosage: 400 MG, BID
     Route: 048
     Dates: start: 20080105, end: 20080116
  2. LASIX [Concomitant]
  3. ASPIRIN [Concomitant]
  4. SPRYCEL [Concomitant]
     Dates: end: 20080106

REACTIONS (3)
  - DYSPNOEA [None]
  - PLATELET COUNT INCREASED [None]
  - PLEURAL EFFUSION [None]
